FAERS Safety Report 15926455 (Version 2)
Quarter: 2019Q1

REPORT INFORMATION
  Report Type: Spontaneous
  Country: US (occurrence: US)
  Receive Date: 20190206
  Receipt Date: 20190328
  Transmission Date: 20190417
  Serious: No
  Sender: FDA-Public Use
  Company Number: US-MYLANLABS-2019M1005482

PATIENT
  Age: 47 Year
  Sex: Male

DRUGS (3)
  1. FENTANYL. [Suspect]
     Active Substance: FENTANYL
     Indication: PRODUCT USED FOR UNKNOWN INDICATION
     Dosage: 1 DOSAGE FORM
     Route: 062
     Dates: start: 2016
  2. FENTANYL. [Suspect]
     Active Substance: FENTANYL
     Dosage: 1 DOSAGE FORM
     Route: 062
  3. METHADONE [Concomitant]
     Active Substance: METHADONE HYDROCHLORIDE

REACTIONS (4)
  - Product dose omission [Recovered/Resolved]
  - Dizziness [Recovered/Resolved]
  - Wrong technique in product usage process [Recovered/Resolved]
  - Drug effect increased [Recovered/Resolved]

NARRATIVE: CASE EVENT DATE: 20190115
